FAERS Safety Report 16062803 (Version 1)
Quarter: 2019Q1

REPORT INFORMATION
  Report Type: Spontaneous
  Country: US (occurrence: US)
  Receive Date: 20190312
  Receipt Date: 20190312
  Transmission Date: 20190418
  Serious: Yes (Other)
  Sender: FDA-Public Use
  Company Number: US-EPIC PHARMA LLC-2019EPC00059

PATIENT
  Age: 61 Year
  Sex: Male
  Weight: 71.67 kg

DRUGS (6)
  1. HYDROXYZINE HYDROCHLORIDE. [Suspect]
     Active Substance: HYDROXYZINE HYDROCHLORIDE
     Indication: ANTIALLERGIC THERAPY
     Dosage: 50 MG MORNING AND BEFORE BEDTIME
     Route: 048
     Dates: start: 20171011
  2. ALPRAZOLAM. [Suspect]
     Active Substance: ALPRAZOLAM
     Indication: NERVOUSNESS
     Dosage: 0.5 MG, 4X/DAY
     Route: 048
     Dates: start: 2015
  3. ALPRAZOLAM. [Suspect]
     Active Substance: ALPRAZOLAM
     Dosage: 4 MG EVERY DAY
  4. MULTIVITAMIN [Concomitant]
     Active Substance: VITAMINS
  5. HYDROXYZINE HYDROCHLORIDE. [Suspect]
     Active Substance: HYDROXYZINE HYDROCHLORIDE
     Indication: ANXIETY
  6. ALPRAZOLAM. [Suspect]
     Active Substance: ALPRAZOLAM
     Dosage: 1 MG, EVERY 8 HOURS (FOR A TOTAL OF 3 MG EVERY DAY)

REACTIONS (8)
  - Drug interaction [Not Recovered/Not Resolved]
  - Hepatitis C [Recovered/Resolved]
  - Oral discomfort [Recovered/Resolved]
  - Oropharyngeal pain [Recovered/Resolved]
  - Dry mouth [Recovered/Resolved]
  - Dysgeusia [Recovered/Resolved]
  - Musculoskeletal pain [Recovering/Resolving]
  - Contusion [Recovering/Resolving]

NARRATIVE: CASE EVENT DATE: 2017
